FAERS Safety Report 25049538 (Version 4)
Quarter: 2025Q2

REPORT INFORMATION
  Report Type: Spontaneous
  Country: JP (occurrence: JP)
  Receive Date: 20250307
  Receipt Date: 20250612
  Transmission Date: 20250717
  Serious: Yes (Death)
  Sender: GENMAB
  Company Number: JP-GENMAB-2025-00598

PATIENT
  Age: 8 Decade
  Sex: Male

DRUGS (1)
  1. EPKINLY [Suspect]
     Active Substance: EPCORITAMAB-BYSP
     Indication: Diffuse large B-cell lymphoma
     Route: 058
     Dates: start: 20240626

REACTIONS (2)
  - Lymph gland infection [Fatal]
  - Marasmus [Fatal]

NARRATIVE: CASE EVENT DATE: 20250201
